FAERS Safety Report 11398628 (Version 1)
Quarter: 2015Q3

REPORT INFORMATION
  Report Type: Spontaneous
  Country: US (occurrence: None)
  Receive Date: 20150804
  Receipt Date: 20150804
  Transmission Date: 20151125
  Serious: Yes (Other)
  Sender: FDA-Public Use
  Company Number: US-SEPTODONT-201200672

PATIENT
  Age: 46 Year
  Sex: Male
  Weight: 59 kg

DRUGS (9)
  1. CITANEST (PRILOCAINE HYDROCHLORIDE, EPINEPHRINE BITARTRATE) [Concomitant]
  2. LIDOCAINE HYDROCHLORIDE (LIDOCAINE HYDROCHLORIDE) [Concomitant]
  3. ZOMETA [Suspect]
     Active Substance: ZOLEDRONIC ACID
     Indication: PLASMA CELL MYELOMA
     Route: 042
  4. EPINEPHRINE BITARTRATE [Concomitant]
     Active Substance: EPINEPHRINE BITARTRATE
  5. AREDIA [Suspect]
     Active Substance: PAMIDRONATE DISODIUM
     Indication: PLASMA CELL MYELOMA
     Route: 042
  6. PREDNISONE (PREDNISONE) [Concomitant]
     Active Substance: PREDNISONE
  7. SEPTOCAINE [Concomitant]
     Active Substance: ARTICAINE HYDROCHLORIDE\EPINEPHRINE BITARTRATE
  8. MELPHALAN HYDROCHLORIDE (MELPHALAN HYDROCHLORIDE) [Concomitant]
  9. EPINEPHRINE (ARTICAINE HYDROCHLORIDE) [Concomitant]

REACTIONS (1)
  - Osteonecrosis of jaw [None]

NARRATIVE: CASE EVENT DATE: 200506
